FAERS Safety Report 4403763-4 (Version None)
Quarter: 2004Q3

REPORT INFORMATION
  Report Type: 
  Country: None (occurrence: None)
  Receive Date: 20040719
  Receipt Date: 20040701
  Transmission Date: 20050211
  Serious: Yes (Hospitalization)
  Sender: FDA-Public Use
  Company Number: 207698

PATIENT
  Age: 69 Year

DRUGS (3)
  1. BEVACIZUMAB (BEVACIZUMAB) PWDR + SOLVENT, INFUSION SOLN, 100MG [Suspect]
     Indication: METASTATIC NEOPLASM
     Dosage: 15 MG/KG, Q3W, INTRAVENOUS
     Route: 042
     Dates: start: 20040420, end: 20040504
  2. ERLOTINIB (ERLOTINIB) TABLET [Suspect]
     Indication: METASTATIC NEOPLASM
     Dosage: 150 MG, QD, ORAL
     Route: 048
     Dates: start: 20040420, end: 20040514
  3. METHOTREXATE [Suspect]

REACTIONS (4)
  - DISEASE PROGRESSION [None]
  - METASTASIS [None]
  - MUCOSAL INFLAMMATION [None]
  - OESOPHAGITIS [None]
